FAERS Safety Report 23165756 (Version 2)
Quarter: 2023Q4

REPORT INFORMATION
  Report Type: Spontaneous
  Country: IR (occurrence: IR)
  Receive Date: 20231109
  Receipt Date: 20231123
  Transmission Date: 20240110
  Serious: Yes (Other)
  Sender: FDA-Public Use
  Company Number: IR-SA-2023SA248105

PATIENT
  Age: 39 Year
  Sex: Female
  Weight: 86 kg

DRUGS (7)
  1. TOUJEO [Suspect]
     Active Substance: INSULIN GLARGINE
     Indication: Gestational diabetes
     Dosage: UNK UNK, QD
     Dates: start: 20230715
  2. CABERGOLINE [Suspect]
     Active Substance: CABERGOLINE
     Dosage: UNK UNK, Q12H
     Route: 048
     Dates: start: 20230902, end: 20230904
  3. ONDANSETRON [Concomitant]
     Active Substance: ONDANSETRON
     Dosage: 4 MG, QD
     Dates: start: 202302
  4. ESOMEPRAZOLE [Concomitant]
     Active Substance: ESOMEPRAZOLE
     Dosage: 40 MG, QD
     Dates: start: 202302
  5. VITAMIN D3 [Concomitant]
     Active Substance: CHOLECALCIFEROL
     Dosage: 5000 IU, QM
     Dates: start: 202302
  6. IRON [Concomitant]
     Active Substance: IRON
     Dosage: UNK UNK, QD
     Dates: start: 202305
  7. FOLIC ACID [Concomitant]
     Active Substance: FOLIC ACID
     Dosage: UNK UNK, QD
     Dates: start: 202302

REACTIONS (6)
  - Exposure during pregnancy [Unknown]
  - Fall [Unknown]
  - Abortion [Unknown]
  - Blood glucose increased [Unknown]
  - Stress [Unknown]
  - Sleep disorder [Unknown]

NARRATIVE: CASE EVENT DATE: 20230831
